FAERS Safety Report 7429101 (Version 13)
Quarter: 2014Q4

REPORT INFORMATION
  Report Type: Spontaneous
  Country: CA (occurrence: CA)
  Receive Date: 20100623
  Receipt Date: 20141202
  Transmission Date: 20150529
  Serious: Yes (Hospitalization, Other)
  Sender: FDA-Public Use
  Company Number: CA-ROCHE-GNE303236

PATIENT
  Age: 44 Year
  Sex: Female
  Weight: 83.4 kg

DRUGS (11)
  1. PREDNISONE. [Concomitant]
     Active Substance: PREDNISONE
     Indication: PRODUCT USED FOR UNKNOWN INDICATION
     Route: 065
  2. XOLAIR [Suspect]
     Active Substance: OMALIZUMAB
     Route: 058
     Dates: start: 20090422
  3. XOLAIR [Suspect]
     Active Substance: OMALIZUMAB
     Route: 058
  4. XOLAIR [Suspect]
     Active Substance: OMALIZUMAB
     Route: 058
     Dates: start: 20111207
  5. SINGULAIR [Concomitant]
     Active Substance: MONTELUKAST SODIUM
     Indication: PRODUCT USED FOR UNKNOWN INDICATION
  6. PREDNISONE. [Concomitant]
     Active Substance: PREDNISONE
     Route: 065
  7. XOLAIR [Suspect]
     Active Substance: OMALIZUMAB
     Route: 058
     Dates: start: 20130117
  8. AVELON [Suspect]
     Active Substance: MOXIFLOXACIN HYDROCHLORIDE
     Indication: PRODUCT USED FOR UNKNOWN INDICATION
     Route: 065
  9. XOLAIR [Suspect]
     Active Substance: OMALIZUMAB
     Indication: ASTHMA
     Route: 058
     Dates: start: 20090619
  10. SYMBICORT [Concomitant]
     Active Substance: BUDESONIDE\FORMOTEROL FUMARATE DIHYDRATE
     Indication: PRODUCT USED FOR UNKNOWN INDICATION
  11. ALVESCO [Concomitant]
     Active Substance: CICLESONIDE
     Indication: PRODUCT USED FOR UNKNOWN INDICATION

REACTIONS (18)
  - Pain in extremity [Unknown]
  - Pharyngeal oedema [Unknown]
  - Hypoaesthesia oral [Unknown]
  - Nasal polyps [Unknown]
  - Dizziness [Unknown]
  - Upper respiratory tract infection [Unknown]
  - White blood cell count increased [Unknown]
  - Asthma [Not Recovered/Not Resolved]
  - Chest discomfort [Unknown]
  - Blood pressure decreased [Unknown]
  - Rash pruritic [Unknown]
  - Dyspnoea [Unknown]
  - Vocal cord disorder [Unknown]
  - Respiratory fume inhalation disorder [Unknown]
  - Cough [Unknown]
  - Pruritus [Unknown]
  - Stress [Unknown]
  - Colitis microscopic [Unknown]

NARRATIVE: CASE EVENT DATE: 20090605
